FAERS Safety Report 14669591 (Version 1)
Quarter: 2018Q1

REPORT INFORMATION
  Report Type: Spontaneous
  Country: US (occurrence: US)
  Receive Date: 20180321
  Receipt Date: 20180321
  Transmission Date: 20180509
  Serious: Yes (Hospitalization)
  Sender: FDA-Public Use
  Company Number: None

PATIENT
  Age: 1 Year
  Sex: Male

DRUGS (8)
  1. SODIUM PHOSPHATE [Concomitant]
     Active Substance: SODIUM PHOSPHATE
  2. FERROUS SULFATE. [Concomitant]
     Active Substance: FERROUS SULFATE
  3. GENTAMICIN. [Concomitant]
     Active Substance: GENTAMICIN
  4. TRIAMCINOLONE [Concomitant]
     Active Substance: TRIAMCINOLONE
  5. SMZ-TMP [Concomitant]
     Active Substance: SULFAMETHOXAZOLE\TRIMETHOPRIM
  6. FLUTICASONE. [Concomitant]
     Active Substance: FLUTICASONE
  7. TRIPLE PASTERM KIONEX [Concomitant]
  8. NUTROPIN [Suspect]
     Active Substance: SOMATROPIN
     Indication: NEPHROPATHY
     Route: 058
     Dates: start: 20171027

REACTIONS (1)
  - Renal transplant [None]
